FAERS Safety Report 6637610-7 (Version None)
Quarter: 2010Q1

REPORT INFORMATION
  Report Type: 
  Country: None (occurrence: None)
  Receive Date: 20100317
  Receipt Date: 20100303
  Transmission Date: 20100710
  Serious: Yes (Other)
  Sender: FDA-Public Use
  Company Number: US-RANBAXY-2010RR-32433

PATIENT
  Age: 44 Year
  Sex: Female

DRUGS (2)
  1. IBUPROFEN [Suspect]
  2. TRIAMCINOLONE [Suspect]

REACTIONS (2)
  - CONJUNCTIVAL HAEMORRHAGE [None]
  - ECCHYMOSIS [None]
